FAERS Safety Report 9429719 (Version 1)
Quarter: 2013Q3

REPORT INFORMATION
  Report Type: Report from Study
  Country: JP (occurrence: JP)
  Receive Date: 20130730
  Receipt Date: 20130730
  Transmission Date: 20140515
  Serious: Yes (Other)
  Sender: FDA-Public Use
  Company Number: JP-JNJFOC-20130716627

PATIENT
  Age: 57 Year
  Sex: Male
  Weight: 68 kg

DRUGS (10)
  1. STELARA [Suspect]
     Indication: PSORIASIS
     Route: 058
     Dates: start: 20120921
  2. STELARA [Suspect]
     Indication: PSORIASIS
     Route: 058
     Dates: start: 20121019, end: 20130426
  3. BAYASPIRIN [Concomitant]
     Indication: ANGINA PECTORIS
     Route: 048
  4. CILOSTATE [Concomitant]
     Indication: ANGINA PECTORIS
     Route: 048
  5. LIVALO [Concomitant]
     Route: 048
  6. ARTIST [Concomitant]
     Indication: ANGINA PECTORIS
     Route: 048
  7. DERMOVATE [Concomitant]
     Indication: PSORIASIS
     Route: 061
  8. DERMOVATE [Concomitant]
     Indication: PSORIASIS
     Route: 061
  9. OXAROL [Concomitant]
     Indication: PSORIASIS
     Route: 061
  10. OXAROL [Concomitant]
     Indication: PSORIASIS
     Route: 061

REACTIONS (1)
  - Infected dermal cyst [Recovered/Resolved]
